FAERS Safety Report 14372978 (Version 1)
Quarter: 2018Q1

REPORT INFORMATION
  Report Type: Report from Study
  Country: US (occurrence: US)
  Receive Date: 20180110
  Receipt Date: 20180110
  Transmission Date: 20180509
  Serious: Yes (Hospitalization)
  Sender: FDA-Public Use
  Company Number: US-ACTELION-A-US2018-165399

PATIENT
  Age: 49 Year
  Sex: Female

DRUGS (4)
  1. TREPROSTINIL [Concomitant]
     Active Substance: TREPROSTINIL
  2. TRACLEER [Suspect]
     Active Substance: BOSENTAN
     Indication: PULMONARY ARTERIAL HYPERTENSION
     Dosage: 125 MG, BID
     Route: 048
     Dates: start: 20141204
  3. REMODULIN [Concomitant]
     Active Substance: TREPROSTINIL
  4. OXYGEN. [Concomitant]
     Active Substance: OXYGEN

REACTIONS (5)
  - Cardiac failure acute [Unknown]
  - Upper respiratory tract infection [Unknown]
  - Viral infection [Unknown]
  - Weight increased [Unknown]
  - Oxygen therapy [Unknown]

NARRATIVE: CASE EVENT DATE: 2017
